FAERS Safety Report 9461195 (Version 1)
Quarter: 2013Q3

REPORT INFORMATION
  Report Type: Spontaneous
  Country: US (occurrence: None)
  Receive Date: 20130814
  Receipt Date: 20130814
  Transmission Date: 20140515
  Serious: Yes (Hospitalization)
  Sender: FDA-Public Use
  Company Number: None

PATIENT
  Age: 83 Year
  Sex: Male
  Weight: 60 kg

DRUGS (1)
  1. OMEPRAZOLE [Suspect]
     Indication: ABDOMINAL DISCOMFORT
     Route: 048
     Dates: start: 20130124

REACTIONS (5)
  - Diarrhoea [None]
  - Renal failure acute [None]
  - Clostridium test positive [None]
  - Dehydration [None]
  - Hypophagia [None]
